FAERS Safety Report 8291530-3 (Version None)
Quarter: 2012Q2

REPORT INFORMATION
  Report Type: 
  Country: None (occurrence: None)
  Receive Date: 20120417
  Receipt Date: 20120410
  Transmission Date: 20120825
  Serious: No
  Sender: FDA-Public Use
  Company Number: US-PFIZER INC-US-WYE-H14770610

PATIENT
  Sex: Female
  Weight: 67.12 kg

DRUGS (7)
  1. PRISTIQ [Suspect]
     Dosage: 100.0 MG, 1X/DAY
     Route: 048
  2. PRISTIQ [Suspect]
     Dosage: UNK
  3. ATORVASTATIN [Concomitant]
  4. PRISTIQ [Suspect]
     Dosage: 50.0 MG, 1X/DAY
     Route: 065
     Dates: start: 20090701
  5. PRISTIQ [Suspect]
     Dosage: 50.0 MG, 1X/DAY
     Route: 048
  6. SYNTHROID [Concomitant]
  7. DIOVAN [Concomitant]

REACTIONS (3)
  - DRUG ADMINISTRATION ERROR [None]
  - EXPIRED DRUG ADMINISTERED [None]
  - HEAD DISCOMFORT [None]
